FAERS Safety Report 10486305 (Version 1)
Quarter: 2014Q3

REPORT INFORMATION
  Report Type: Spontaneous
  Country: CO (occurrence: None)
  Receive Date: 20140929
  Receipt Date: 20140929
  Transmission Date: 20150326
  Serious: Yes (Hospitalization, Other)
  Sender: FDA-Public Use
  Company Number: 2014-20399

PATIENT
  Age: 61 Year
  Sex: Female

DRUGS (1)
  1. EYLEA [Suspect]
     Active Substance: AFLIBERCEPT
     Indication: AGE-RELATED MACULAR DEGENERATION
     Dosage: TREATMENT OF 10 APPLICATIONS
     Route: 031
     Dates: start: 20130222, end: 20140327

REACTIONS (2)
  - Glaucoma [None]
  - Eye disorder [None]

NARRATIVE: CASE EVENT DATE: 201402
